FAERS Safety Report 6286488-2 (Version None)
Quarter: 2009Q3

REPORT INFORMATION
  Report Type: 
  Country: None (occurrence: None)
  Receive Date: 20090716
  Receipt Date: 20080612
  Transmission Date: 20100115
  Serious: Yes (Hospitalization)
  Sender: FDA-Public Use
  Company Number: 2008BI015038

PATIENT
  Sex: Female

DRUGS (3)
  1. AVONEX [Suspect]
     Indication: MULTIPLE SCLEROSIS
     Dosage: 15 UG;QW;IM
     Route: 030
     Dates: start: 20080601
  2. CON MEDS [Concomitant]
  3. PREV MEDS [Concomitant]

REACTIONS (10)
  - FUNGAL INFECTION [None]
  - HYPOAESTHESIA [None]
  - INSOMNIA [None]
  - LIVER FUNCTION TEST ABNORMAL [None]
  - MEMORY IMPAIRMENT [None]
  - MULTIPLE SCLEROSIS RELAPSE [None]
  - PAIN [None]
  - PERONEAL NERVE PALSY [None]
  - PERSONALITY CHANGE [None]
  - URINARY TRACT INFECTION [None]
